FAERS Safety Report 6878745-3 (Version None)
Quarter: 2010Q3

REPORT INFORMATION
  Report Type: 
  Country: None (occurrence: None)
  Receive Date: 20100728
  Receipt Date: 20100715
  Transmission Date: 20110219
  Serious: Yes (Hospitalization)
  Sender: FDA-Public Use
  Company Number: ES-WATSON-2010-10029

PATIENT
  Age: 65 Year
  Sex: Female

DRUGS (4)
  1. MONODOX [Suspect]
     Indication: RESPIRATORY TRACT INFECTION
     Dosage: 100 MG, Q12H
     Route: 048
  2. SERTRALINE HCL [Suspect]
     Indication: AFFECTIVE DISORDER
     Dosage: 50 MG, Q24H
  3. SULFAMETHOXAZOLE/TRIMETHOPRIM 400/80 (WATSON LABORATORIES) [Suspect]
     Indication: URINARY TRACT INFECTION
     Dosage: 400MG/80MG, Q 12H
     Route: 048
  4. LEVOFLOXACIN [Suspect]
     Indication: RESPIRATORY TRACT INFECTION
     Dosage: 500 MG, Q24H
     Route: 048

REACTIONS (2)
  - DRUG INTERACTION [None]
  - HEPATOTOXICITY [None]
